FAERS Safety Report 22112171 (Version 1)
Quarter: 2023Q1

REPORT INFORMATION
  Report Type: Spontaneous
  Country: NL (occurrence: NL)
  Receive Date: 20230318
  Receipt Date: 20230318
  Transmission Date: 20230418
  Serious: Yes (Hospitalization, Other)
  Sender: FDA-Public Use
  Company Number: NL-UNITED THERAPEUTICS-UNT-2023-007086

PATIENT

DRUGS (3)
  1. REMODULIN [Suspect]
     Active Substance: TREPROSTINIL
     Indication: Product used for unknown indication
     Dosage: UNK UNK, CONTINUING
     Route: 041
  2. REMODULIN [Suspect]
     Active Substance: TREPROSTINIL
     Dosage: UNK UNK, CONTINUING (}-7% DEVIATION) [LOW RATE]
     Route: 041
     Dates: start: 20230307, end: 202303
  3. REMODULIN [Suspect]
     Active Substance: TREPROSTINIL
     Dosage: UNK UNK, CONTINUING (20% INCREASE IN FLOW RATE)
     Route: 041
     Dates: start: 20230307, end: 202303

REACTIONS (7)
  - Incorrect drug administration rate [Recovered/Resolved]
  - Overdose [Recovered/Resolved]
  - Headache [Unknown]
  - Dizziness [Unknown]
  - Nausea [Unknown]
  - Thrombosis in device [Unknown]
  - Tinnitus [Unknown]

NARRATIVE: CASE EVENT DATE: 20230307
